FAERS Safety Report 6568717-0 (Version None)
Quarter: 2010Q1

REPORT INFORMATION
  Report Type: 
  Country: None (occurrence: None)
  Receive Date: 20100203
  Receipt Date: 20100128
  Transmission Date: 20100710
  Serious: Yes (Hospitalization)
  Sender: FDA-Public Use
  Company Number: PHHY2010JP02057

PATIENT
  Sex: Male

DRUGS (11)
  1. DIOVAN [Suspect]
     Indication: HYPERTENSION
     Dosage: 80 MG, QD
     Route: 048
     Dates: start: 20070802, end: 20080115
  2. DIOVAN [Suspect]
     Dosage: 120 MG, QD
     Route: 048
     Dates: start: 20080115, end: 20080311
  3. DIOVAN [Suspect]
     Dosage: 160 MG, QD
     Route: 048
     Dates: start: 20080311, end: 20090423
  4. CALBLOCK [Concomitant]
     Indication: HYPERTENSION
     Dosage: 6 MG
     Route: 048
     Dates: start: 20071023, end: 20080825
  5. AMLODIPINE [Concomitant]
     Indication: HYPERTENSION
     Dosage: 5 MG
     Route: 048
     Dates: start: 20051020, end: 20071023
  6. NATRIX [Concomitant]
     Indication: HYPERTENSION
     Dosage: 1MG
     Route: 048
     Dates: start: 20080728, end: 20080916
  7. ADALAT CC [Concomitant]
     Indication: HYPERTENSION
     Dosage: 40MG
     Route: 048
     Dates: start: 20080825
  8. FLUITRAN [Concomitant]
     Indication: HYPERTENSION
     Dosage: 2 MG
     Route: 048
     Dates: start: 20080916, end: 20090423
  9. LASIX [Concomitant]
     Indication: HYPERTENSION
     Dosage: 20 MG
     Route: 048
     Dates: start: 20090423
  10. KENTON [Concomitant]
     Dosage: 400 MG
     Route: 048
     Dates: start: 20070118
  11. ALLORINE [Concomitant]
     Dosage: 100 MG
     Route: 048
     Dates: start: 20060907, end: 20060907

REACTIONS (2)
  - CARDIAC FAILURE [None]
  - PNEUMONIA [None]
